FAERS Safety Report 11572109 (Version 2)
Quarter: 2015Q4

REPORT INFORMATION
  Report Type: Spontaneous
  Country: US (occurrence: US)
  Receive Date: 20150916
  Receipt Date: 20151027
  Transmission Date: 20160304
  Serious: No
  Sender: FDA-Public Use
  Company Number: US-ELI_LILLY_AND_COMPANY-US200910000762

PATIENT
  Sex: Female

DRUGS (3)
  1. FORTEO [Suspect]
     Active Substance: TERIPARATIDE
     Dosage: 20 UG, DAILY (1/D)
  2. CALCIUM [Concomitant]
     Active Substance: CALCIUM
     Dosage: 1800 MG, UNK
  3. FORTEO [Suspect]
     Active Substance: TERIPARATIDE
     Indication: OSTEOPOROSIS
     Dosage: 20 UG, DAILY (1/D)
     Dates: start: 20090926

REACTIONS (7)
  - Pruritus [Unknown]
  - Fibromyalgia [Recovered/Resolved]
  - Nausea [Recovered/Resolved]
  - Injection site reaction [Unknown]
  - Muscle spasms [Recovered/Resolved]
  - Injection site pain [Not Recovered/Not Resolved]
  - Pain [Recovered/Resolved]

NARRATIVE: CASE EVENT DATE: 2009
